FAERS Safety Report 6669711-1 (Version None)
Quarter: 2010Q2

REPORT INFORMATION
  Report Type: 
  Country: None (occurrence: None)
  Receive Date: 20100406
  Receipt Date: 20100401
  Transmission Date: 20101027
  Serious: Yes (Death, Other)
  Sender: FDA-Public Use
  Company Number: CN-ABBOTT-10P-035-0635992-00

PATIENT
  Age: 37 Year
  Sex: Male
  Weight: 71 kg

DRUGS (7)
  1. SEVOFRANE [Suspect]
     Indication: GENERAL ANAESTHESIA
     Route: 055
     Dates: start: 20100301, end: 20100301
  2. SEVOFRANE [Suspect]
     Route: 055
     Dates: start: 20100401, end: 20100401
  3. FORANE LIQUID [Suspect]
     Indication: GENERAL ANAESTHESIA
     Route: 055
     Dates: start: 20100401, end: 20100401
  4. MIDAZOLAM HCL [Concomitant]
     Indication: ANAESTHESIA
     Dosage: 2 MG DAILY
     Dates: start: 20100401, end: 20100401
  5. PROPOFOL [Concomitant]
     Indication: ANAESTHESIA
     Dosage: 100 MG DAILY
     Dates: start: 20100401, end: 20100401
  6. CISATRACURIUM BESYLATE [Concomitant]
     Indication: ANAESTHESIA
     Dosage: 8 MG DAILY
     Dates: start: 20100401, end: 20100401
  7. FENTANYL [Concomitant]
     Indication: ANAESTHESIA
     Dosage: 0.2 MG DAILY
     Dates: start: 20100401, end: 20100401

REACTIONS (2)
  - HYPERTHERMIA MALIGNANT [None]
  - MULTI-ORGAN FAILURE [None]
